FAERS Safety Report 6341748-1 (Version None)
Quarter: 2009Q3

REPORT INFORMATION
  Report Type: 
  Country: None (occurrence: None)
  Receive Date: 20090904
  Receipt Date: 20090826
  Transmission Date: 20100115
  Serious: Yes (Other)
  Sender: FDA-Public Use
  Company Number: PHHY2009JP36400

PATIENT
  Age: 18 Year
  Sex: Female

DRUGS (2)
  1. TEGRETOL [Suspect]
     Indication: EPILEPSY
     Dosage: UNK
  2. ZONISAMIDE [Concomitant]
     Dosage: UNK

REACTIONS (4)
  - DRUG ERUPTION [None]
  - EPSTEIN-BARR VIRUS INFECTION [None]
  - HYPERAESTHESIA [None]
  - MUSCULAR WEAKNESS [None]
